FAERS Safety Report 11233095 (Version 1)
Quarter: 2015Q3

REPORT INFORMATION
  Report Type: Spontaneous
  Country: GB (occurrence: GB)
  Receive Date: 20150701
  Receipt Date: 20150701
  Transmission Date: 20151125
  Serious: Yes (Life-Threatening, Hospitalization, Disabling, Other)
  Sender: FDA-Public Use
  Company Number: GB-GLAXOSMITHKLINE INC.-GB2015011680

PATIENT

DRUGS (6)
  1. NORTRIPTYLINE [Suspect]
     Active Substance: NORTRIPTYLINE
     Indication: PAIN
     Dosage: DOSE: 100 MG
     Route: 048
     Dates: start: 2002
  2. NORTRIPTYLINE [Suspect]
     Active Substance: NORTRIPTYLINE
     Indication: PAIN
  3. CITALOPRAM [Suspect]
     Active Substance: CITALOPRAM HYDROBROMIDE
     Route: 065
     Dates: start: 2002
  4. RANITIDINE [Suspect]
     Active Substance: RANITIDINE\RANITIDINE HYDROCHLORIDE
  5. OMEPRAZOLE. [Concomitant]
     Active Substance: OMEPRAZOLE
     Dosage: DOSE: 20 MG
     Route: 065
     Dates: start: 2001
  6. CODEINE [Concomitant]
     Active Substance: CODEINE
     Dosage: DOSE: 240 MG
     Route: 065
     Dates: start: 2000

REACTIONS (4)
  - Hypertension [Unknown]
  - Long QT syndrome [Unknown]
  - Ventricular arrhythmia [Not Recovered/Not Resolved]
  - Cardiac arrest [Recovered/Resolved with Sequelae]

NARRATIVE: CASE EVENT DATE: 2004
